FAERS Safety Report 24547835 (Version 1)
Quarter: 2024Q4

REPORT INFORMATION
  Report Type: Report from Study
  Country: IT (occurrence: IT)
  Receive Date: 20241025
  Receipt Date: 20241025
  Transmission Date: 20250114
  Serious: Yes (Hospitalization, Other)
  Sender: ABBVIE
  Company Number: IT-ABBVIE-5974026

PATIENT
  Age: 66 Year
  Sex: Female

DRUGS (2)
  1. CARBIDOPA\LEVODOPA [Suspect]
     Active Substance: CARBIDOPA\LEVODOPA
     Indication: Parkinson^s disease
     Dosage: DAILY DOSE: 1.540 MG/DAY; MD: 10ML+3ML; CR: 4ML/H (15H); ED: 3,5ML
     Route: 050
     Dates: start: 20190311
  2. CARBIDOPA\LEVODOPA [Suspect]
     Active Substance: CARBIDOPA\LEVODOPA

REACTIONS (1)
  - Ischaemia [Not Recovered/Not Resolved]

NARRATIVE: CASE EVENT DATE: 20241009
